FAERS Safety Report 8730586 (Version 2)
Quarter: 2013Q1

REPORT INFORMATION
  Report Type: Spontaneous
  Country: BR (occurrence: None)
  Receive Date: 20120731
  Receipt Date: 20130225
  Transmission Date: 20140127
  Serious: Yes (Hospitalization)
  Sender: FDA-Public Use
  Company Number: 2012-002694

PATIENT
  Age: 80 Year
  Sex: Female
  Weight: 84 kg

DRUGS (3)
  1. ENABLEX [Suspect]
     Indication: URINARY INCONTINENCE
     Dosage: 15 MG DAILY, ORAL
     Route: 048
  2. LASIX [Concomitant]
  3. BROMAZEPAM [Concomitant]

REACTIONS (14)
  - Ovarian cancer [None]
  - Uterine cancer [None]
  - Breast neoplasm [None]
  - Drug ineffective [None]
  - Nocturia [None]
  - Asthenia [None]
  - Pollakiuria [None]
  - Menorrhagia [None]
  - Dysuria [None]
  - Activities of daily living impaired [None]
  - Urinary incontinence [None]
  - Headache [None]
  - Neoplasm [None]
  - Fatigue [None]
